FAERS Safety Report 20405800 (Version 2)
Quarter: 2022Q1

REPORT INFORMATION
  Report Type: Spontaneous
  Country: US (occurrence: US)
  Receive Date: 20220131
  Receipt Date: 20220215
  Transmission Date: 20220423
  Serious: No
  Sender: FDA-Public Use
  Company Number: US-BAYER-2022A014808

PATIENT
  Age: 47 Year
  Sex: Female

DRUGS (1)
  1. CLIMARA PRO [Suspect]
     Active Substance: ESTRADIOL\LEVONORGESTREL
     Dosage: UNK
     Route: 062
     Dates: start: 202107, end: 202201

REACTIONS (2)
  - Application site irritation [Recovering/Resolving]
  - Application site irritation [Recovering/Resolving]

NARRATIVE: CASE EVENT DATE: 20220103
